FAERS Safety Report 15918959 (Version 6)
Quarter: 2019Q2

REPORT INFORMATION
  Report Type: Spontaneous
  Country: JP (occurrence: JP)
  Receive Date: 20190205
  Receipt Date: 20190510
  Transmission Date: 20190711
  Serious: Yes (Life-Threatening, Other)
  Sender: FDA-Public Use
  Company Number: JP-ASTELLAS-2019JP000427

PATIENT
  Age: 6 Decade
  Sex: Female

DRUGS (4)
  1. CYLOCIDE-N [Concomitant]
     Indication: PRODUCT USED FOR UNKNOWN INDICATION
     Dosage: 1 G/M2, TWICE DAILY
     Route: 065
  2. XOSPATA [Suspect]
     Active Substance: GILTERITINIB
     Route: 048
     Dates: start: 20190222, end: 20190225
  3. XOSPATA [Suspect]
     Active Substance: GILTERITINIB
     Indication: ACUTE MYELOID LEUKAEMIA
     Route: 048
     Dates: start: 20190111, end: 20190131
  4. CYLOCIDE-N [Concomitant]
     Route: 065

REACTIONS (5)
  - Off label use [Unknown]
  - Aspergillus infection [Recovered/Resolved]
  - Platelet count decreased [Unknown]
  - Cerebral haemorrhage [Recovered/Resolved]
  - Pyrexia [Recovered/Resolved]

NARRATIVE: CASE EVENT DATE: 20190117
